FAERS Safety Report 5734869-5 (Version None)
Quarter: 2008Q2

REPORT INFORMATION
  Report Type: 
  Country: None (occurrence: None)
  Receive Date: 20080512
  Receipt Date: 20080507
  Transmission Date: 20081010
  Serious: Yes (Hospitalization)
  Sender: FDA-Public Use
  Company Number: A0726816A

PATIENT
  Age: 24 Year
  Sex: Male

DRUGS (2)
  1. LAMICTAL [Suspect]
     Indication: BIPOLAR DISORDER
     Dosage: 25MG PER DAY
     Route: 048
     Dates: start: 20080421, end: 20080502
  2. NO CONCURRENT MEDICATION [Concomitant]

REACTIONS (2)
  - BODY TEMPERATURE FLUCTUATION [None]
  - RASH GENERALISED [None]
